FAERS Safety Report 9377083 (Version 1)
Quarter: 2013Q3

REPORT INFORMATION
  Report Type: Report from Study
  Country: US (occurrence: US)
  Receive Date: 20130701
  Receipt Date: 20130701
  Transmission Date: 20140515
  Serious: Yes (Hospitalization)
  Sender: FDA-Public Use
  Company Number: US-UCBSA-090508

PATIENT
  Age: 62 Year
  Sex: Female
  Weight: 69 kg

DRUGS (11)
  1. CIMZIA [Suspect]
     Indication: CROHN^S DISEASE
     Dosage: UNKNOWN DOSE
     Route: 058
     Dates: start: 201109
  2. MACRODANTIN [Concomitant]
     Indication: CROHN^S DISEASE
     Dates: start: 200909
  3. METHOTREXATE [Concomitant]
     Indication: CROHN^S DISEASE
     Dates: start: 20050804
  4. METHOTREXATE [Concomitant]
     Indication: CROHN^S DISEASE
     Dates: start: 20120131
  5. BENADRYL [Concomitant]
     Indication: CROHN^S DISEASE
  6. PRIMAL DEFENSE [Concomitant]
     Indication: CROHN^S DISEASE
  7. FOLIC ACID [Concomitant]
     Indication: CROHN^S DISEASE
  8. VITAMIN D3 [Concomitant]
     Indication: CROHN^S DISEASE
  9. DOCUSATE [Concomitant]
     Indication: CROHN^S DISEASE
  10. NYSTATIN [Concomitant]
     Indication: CROHN^S DISEASE
     Dosage: POWDER
  11. LAMISIL [Concomitant]
     Indication: CROHN^S DISEASE

REACTIONS (2)
  - Pancreatitis [Recovered/Resolved]
  - Cholecystitis [Recovered/Resolved]
